FAERS Safety Report 16270588 (Version 2)
Quarter: 2019Q2

REPORT INFORMATION
  Report Type: Report from Study
  Country: None (occurrence: US)
  Receive Date: 20190503
  Receipt Date: 20190624
  Transmission Date: 20190711
  Serious: Yes (Hospitalization, Other)
  Sender: FDA-Public Use
  Company Number: US-ABBVIE-19S-163-2762168-00

PATIENT
  Sex: Male
  Weight: 101.7 kg

DRUGS (1)
  1. ANDROGEL [Suspect]
     Active Substance: TESTOSTERONE
     Indication: ANDROGEN DEFICIENCY
     Route: 061
     Dates: start: 2010

REACTIONS (12)
  - Explorative laparotomy [Unknown]
  - Hyperlipidaemia [Not Recovered/Not Resolved]
  - Hypertension [Recovering/Resolving]
  - Type V hyperlipidaemia [Not Recovered/Not Resolved]
  - Testis cancer [Not Recovered/Not Resolved]
  - Osteoarthritis [Not Recovered/Not Resolved]
  - Hypothyroidism [Not Recovered/Not Resolved]
  - Androgen deficiency [Not Recovered/Not Resolved]
  - Benign prostatic hyperplasia [Recovering/Resolving]
  - Type IIa hyperlipidaemia [Not Recovered/Not Resolved]
  - Erectile dysfunction [Not Recovered/Not Resolved]
  - Benign lymph node neoplasm [Unknown]

NARRATIVE: CASE EVENT DATE: 2012
